FAERS Safety Report 7225852-1 (Version None)
Quarter: 2011Q1

REPORT INFORMATION
  Report Type: 
  Country: None (occurrence: None)
  Receive Date: 20110107
  Receipt Date: 20110107
  Transmission Date: 20110831
  Serious: Yes (Life-Threatening, Hospitalization)
  Sender: FDA-Public Use
  Company Number: None

PATIENT
  Sex: Female
  Weight: 61.2356 kg

DRUGS (1)
  1. DURAGESIC-100 [Suspect]
     Indication: FIBROMYALGIA
     Dosage: 3 PATCHES Q48-72H TRANSDERMAL   ~2 WEEKS, 5+YR HX OF USE
     Route: 062
     Dates: start: 20090103, end: 20090120

REACTIONS (9)
  - COMA [None]
  - INADEQUATE ANALGESIA [None]
  - PNEUMONIA ASPIRATION [None]
  - UNRESPONSIVE TO STIMULI [None]
  - HYPERGLYCAEMIA [None]
  - ANAEMIA [None]
  - INCORRECT DRUG ADMINISTRATION DURATION [None]
  - INCORRECT DOSE ADMINISTERED [None]
  - ACID BASE BALANCE ABNORMAL [None]
